FAERS Safety Report 5760854-3 (Version None)
Quarter: 2008Q2

REPORT INFORMATION
  Report Type: 
  Country: None (occurrence: None)
  Receive Date: 20080606
  Receipt Date: 20080529
  Transmission Date: 20081010
  Serious: Yes (Hospitalization)
  Sender: FDA-Public Use
  Company Number: US-KINGPHARMUSA00001-K200800604

PATIENT

DRUGS (2)
  1. ALTACE [Suspect]
     Dosage: ONE OR TWO TABLETS
     Route: 048
     Dates: start: 20071101, end: 20071101
  2. HYDROCHLOROTHIAZIDE [Suspect]
     Dosage: ONE OR TWO TABLETS
     Route: 048
     Dates: start: 20071101, end: 20071101

REACTIONS (4)
  - CAESAREAN SECTION [None]
  - DRUG EXPOSURE DURING PREGNANCY [None]
  - HELLP SYNDROME [None]
  - PREMATURE BABY [None]
